FAERS Safety Report 5730800-7 (Version None)
Quarter: 2008Q2

REPORT INFORMATION
  Report Type: 
  Country: None (occurrence: None)
  Receive Date: 20080505
  Receipt Date: 20080420
  Transmission Date: 20081010
  Serious: Yes (Hospitalization, Other)
  Sender: FDA-Public Use
  Company Number: 2008S1006991

PATIENT
  Age: 73 Year
  Sex: Male

DRUGS (2)
  1. ASPIRIN [Suspect]
     Indication: CORONARY ARTERY DISEASE
  2. PIROXICAM [Suspect]
     Indication: CORONARY ARTERY DISEASE

REACTIONS (3)
  - DIAPHRAGMATIC DISORDER [None]
  - HAEMORRHAGE [None]
  - OBSTRUCTION [None]
